FAERS Safety Report 6775470-4 (Version None)
Quarter: 2010Q2

REPORT INFORMATION
  Report Type: 
  Country: None (occurrence: None)
  Receive Date: 20100617
  Receipt Date: 20100610
  Transmission Date: 20101027
  Serious: Yes (Disabling)
  Sender: FDA-Public Use
  Company Number: GB-PFIZER INC-2010072652

PATIENT
  Age: 67 Year
  Sex: Female

DRUGS (9)
  1. CELECOXIB [Suspect]
     Indication: OSTEOARTHRITIS
     Dosage: 200 MG, 2X/DAY
     Route: 048
     Dates: start: 20090319, end: 20100518
  2. CELECOXIB [Suspect]
     Indication: KNEE ARTHROPLASTY
  3. NITROFURANTOIN [Suspect]
     Dosage: 50 MG, 2X/DAY
     Dates: start: 20080922, end: 20100518
  4. SIMVASTATIN [Concomitant]
     Indication: HYPERTENSION
     Dosage: 40 MG, 1X/DAY
     Dates: start: 20060307
  5. LISINOPRIL [Concomitant]
     Indication: HYPERTENSION
     Dosage: 20 MG, 1X/DAY
     Dates: start: 20060202
  6. OMEPRAZOLE [Concomitant]
     Dosage: 20 MG, 1X/DAY
     Dates: start: 20060519
  7. TOLTERODINE [Concomitant]
     Dosage: 4 MG, 1X/DAY
     Dates: start: 20051115
  8. ACETAMINOPHEN AND CODEINE PHOSPHATE [Concomitant]
     Indication: OSTEOARTHRITIS
     Dosage: 1060 MG, 4X/DAY
     Dates: start: 20060610
  9. ACETAMINOPHEN AND CODEINE PHOSPHATE [Concomitant]
     Indication: KNEE ARTHROPLASTY

REACTIONS (1)
  - INTERSTITIAL LUNG DISEASE [None]
